FAERS Safety Report 18515906 (Version 2)
Quarter: 2025Q2

REPORT INFORMATION
  Report Type: Spontaneous
  Country: NL (occurrence: NL)
  Receive Date: 20201118
  Receipt Date: 20250629
  Transmission Date: 20250716
  Serious: Yes (Death, Hospitalization, Other)
  Sender: AUROBINDO
  Company Number: NL-TEVA-2020-NL-1846132

PATIENT
  Age: 72 Year
  Sex: Male

DRUGS (4)
  1. AMIODARONE [Suspect]
     Active Substance: AMIODARONE
     Indication: Atrial fibrillation
     Route: 065
  2. VORICONAZOLE [Suspect]
     Active Substance: VORICONAZOLE
     Indication: Fungal infection
     Route: 065
  3. IBRUTINIB [Suspect]
     Active Substance: IBRUTINIB
     Indication: Chronic lymphocytic leukaemia (in remission)
     Route: 065
  4. MEROPENEM [Suspect]
     Active Substance: MEROPENEM
     Indication: Fungal infection
     Route: 065

REACTIONS (10)
  - Brain abscess [Fatal]
  - Hyperthyroidism [Fatal]
  - Hemiparesis [Fatal]
  - Cerebrovascular accident [Fatal]
  - Aspergillus infection [Fatal]
  - Serratia infection [Fatal]
  - Cerebral infarction [Fatal]
  - Respiratory distress [Fatal]
  - Respiratory failure [Fatal]
  - Drug ineffective [Fatal]
